FAERS Safety Report 5595569-8 (Version None)
Quarter: 2008Q1

REPORT INFORMATION
  Report Type: 
  Country: None (occurrence: None)
  Receive Date: 20080118
  Receipt Date: 20080110
  Transmission Date: 20080703
  Serious: Yes (Other)
  Sender: FDA-Public Use
  Company Number: PHBS2007JP21226

PATIENT
  Age: 76 Year
  Sex: Female

DRUGS (8)
  1. TERNELIN [Concomitant]
     Route: 048
     Dates: start: 20071030
  2. VOGLIBOSE [Suspect]
     Dosage: 0.3 MG, BID
     Route: 048
     Dates: start: 20071207, end: 20071212
  3. YM [Concomitant]
     Dosage: 9 G, UNK
  4. CHOREITOU [Concomitant]
     Dosage: 22.5 MG, UNK
  5. FORSENID [Concomitant]
  6. LOXONIN [Concomitant]
  7. DIOVAN [Suspect]
     Indication: HYPERTENSION
     Dosage: 40 MG, QD
     Route: 048
     Dates: start: 20071205, end: 20071212
  8. MAGNESIUM OXIDE [Concomitant]
     Dosage: 3 G, UNK
     Route: 048

REACTIONS (10)
  - ALANINE AMINOTRANSFERASE INCREASED [None]
  - ANOREXIA [None]
  - ASPARTATE AMINOTRANSFERASE INCREASED [None]
  - BLOOD GLUCOSE INCREASED [None]
  - BLOOD LACTATE DEHYDROGENASE INCREASED [None]
  - DECREASED APPETITE [None]
  - DIARRHOEA [None]
  - HEPATIC FUNCTION ABNORMAL [None]
  - NAUSEA [None]
  - VOMITING [None]
